FAERS Safety Report 24148191 (Version 3)
Quarter: 2024Q3

REPORT INFORMATION
  Report Type: Report from Study
  Country: MY (occurrence: MY)
  Receive Date: 20240729
  Receipt Date: 20240806
  Transmission Date: 20241017
  Serious: Yes (Other)
  Sender: PFIZER
  Company Number: MY-TAKEDA-2023TUS083115

PATIENT
  Age: 47 Year
  Sex: Male

DRUGS (1)
  1. ADCETRIS [Suspect]
     Active Substance: BRENTUXIMAB VEDOTIN
     Indication: Hodgkin^s disease refractory
     Dosage: 100 MG, EVERY 3 WEEKS
     Route: 042
     Dates: start: 20230110, end: 20230824

REACTIONS (1)
  - Cardiac dysfunction [Unknown]
